FAERS Safety Report 16786024 (Version 2)
Quarter: 2019Q3

REPORT INFORMATION
  Report Type: Spontaneous
  Country: US (occurrence: US)
  Receive Date: 20190909
  Receipt Date: 20190920
  Transmission Date: 20191005
  Serious: Yes (Death)
  Sender: FDA-Public Use
  Company Number: US-PFIZER INC-2019387841

PATIENT
  Age: 66 Year
  Sex: Male

DRUGS (2)
  1. RAPAMUNE [Suspect]
     Active Substance: SIROLIMUS
     Dosage: 0.5 MG, 3X/DAY (.5X3 DAY, 4 DAYS A WEEK )
     Dates: start: 2018
  2. RAPAMUNE [Suspect]
     Active Substance: SIROLIMUS
     Indication: TRANSPLANT
     Dosage: 0.5 MG, 4X/DAY (.5 X4/DAY, 3 DAYS A WEEK )
     Route: 048
     Dates: start: 201702, end: 2018

REACTIONS (1)
  - Death [Fatal]

NARRATIVE: CASE EVENT DATE: 20190905
